FAERS Safety Report 7161406-3 (Version None)
Quarter: 2010Q4

REPORT INFORMATION
  Report Type: 
  Country: None (occurrence: None)
  Receive Date: 20101201
  Receipt Date: 20101117
  Transmission Date: 20110411
  Serious: Yes (Other)
  Sender: FDA-Public Use
  Company Number: 2010AP002449

PATIENT
  Age: 66 Year
  Sex: Female

DRUGS (7)
  1. SOTALOL HYDROCHLORIDE [Suspect]
     Indication: ATRIAL FIBRILLATION
     Dosage: 40 MG;BID PO
     Route: 048
     Dates: start: 20100726, end: 20100920
  2. ALENDRONIC ACID (ALENDRONIC ACID) [Concomitant]
  3. CALCIUM CARBONATE [Concomitant]
  4. SIMVASTATIN [Concomitant]
  5. WARFARIN (WARFARIN) [Concomitant]
  6. IBUPROFEN [Concomitant]
  7. COLECALCIFEROL (COLECALCIFEROL) [Concomitant]

REACTIONS (1)
  - WEIGHT DECREASED [None]
